FAERS Safety Report 14587730 (Version 5)
Quarter: 2019Q2

REPORT INFORMATION
  Report Type: Spontaneous
  Country: US (occurrence: US)
  Receive Date: 20180301
  Receipt Date: 20190617
  Transmission Date: 20190711
  Serious: No
  Sender: FDA-Public Use
  Company Number: US-PFIZER INC-2018082939

PATIENT
  Age: 71 Year
  Sex: Female
  Weight: 86.18 kg

DRUGS (14)
  1. LATANOPROST. [Suspect]
     Active Substance: LATANOPROST
     Dosage: 2 GTT, 1X/DAY (ONE DROP IN EACH EYE EVERY NIGHT; 0.005%)
     Dates: start: 2016
  2. HYDROCORTISONE. [Concomitant]
     Active Substance: HYDROCORTISONE
     Indication: RASH
     Dosage: 2.5 MG, AS NEEDED
     Route: 061
  3. MUCINEX [Concomitant]
     Active Substance: GUAIFENESIN
     Indication: SECRETION DISCHARGE
     Dosage: 600 MG, AS NEEDED
     Route: 048
     Dates: start: 1991
  4. MELOXICAM. [Concomitant]
     Active Substance: MELOXICAM
     Indication: ARTHRITIS
     Dosage: 7.5 MG, 2X/DAY
     Route: 048
     Dates: end: 20190426
  5. ZADITOR [Concomitant]
     Active Substance: KETOTIFEN FUMARATE
     Indication: EYE PRURITUS
     Dosage: 1 GTT, AS NEEDED (ONE DROP IN EACH EYE)
     Dates: start: 2017
  6. MUCINEX [Concomitant]
     Active Substance: GUAIFENESIN
     Dosage: UNK
     Dates: start: 1991
  7. LATANOPROST. [Suspect]
     Active Substance: LATANOPROST
     Indication: INTRAOCULAR PRESSURE INCREASED
     Dosage: 1 GTT, 1X/DAY (AT BEDTIME)
     Dates: start: 2013
  8. LATANOPROST. [Suspect]
     Active Substance: LATANOPROST
     Dosage: 1 GTT, 1X/DAY (1 DROP ONCE AT NIGHT)
  9. MELOXICAM. [Concomitant]
     Active Substance: MELOXICAM
     Dosage: UNK
     Dates: end: 20190525
  10. LEVOTHYROXINE. [Concomitant]
     Active Substance: LEVOTHYROXINE
     Dosage: UNK
     Dates: start: 1990
  11. HYDROCORTISONE. [Concomitant]
     Active Substance: HYDROCORTISONE
     Dosage: UNK
     Dates: start: 1990
  12. LATANOPROST. [Suspect]
     Active Substance: LATANOPROST
     Dosage: UNK
  13. LEVOTHYROXINE. [Concomitant]
     Active Substance: LEVOTHYROXINE
     Indication: HYPOTHYROIDISM
     Dosage: 100 UG, 1X/DAY
     Route: 048
  14. ZADITOR [Concomitant]
     Active Substance: KETOTIFEN FUMARATE
     Dosage: UNK
     Dates: start: 2017

REACTIONS (5)
  - Dizziness [Unknown]
  - Incorrect dose administered [Unknown]
  - Hypertension [Not Recovered/Not Resolved]
  - Body height decreased [Unknown]
  - Product dropper issue [Unknown]

NARRATIVE: CASE EVENT DATE: 2015
